FAERS Safety Report 18969224 (Version 1)
Quarter: 2021Q1

REPORT INFORMATION
  Report Type: Spontaneous
  Country: FR (occurrence: FR)
  Receive Date: 20210304
  Receipt Date: 20210304
  Transmission Date: 20210420
  Serious: Yes (Hospitalization)
  Sender: FDA-Public Use
  Company Number: NVSC2021FR044371

PATIENT

DRUGS (2)
  1. CRIZOTINIB [Suspect]
     Active Substance: CRIZOTINIB
     Indication: PRODUCT USED FOR UNKNOWN INDICATION
     Dosage: UNK
     Route: 065
  2. ZYKADIA [Suspect]
     Active Substance: CERITINIB
     Indication: PRODUCT USED FOR UNKNOWN INDICATION
     Dosage: UNK
     Route: 065
     Dates: start: 20180412

REACTIONS (3)
  - Pleural effusion [Unknown]
  - Diarrhoea [Unknown]
  - Acute respiratory failure [Unknown]

NARRATIVE: CASE EVENT DATE: 20171009
